FAERS Safety Report 10425054 (Version 1)
Quarter: 2014Q3

REPORT INFORMATION
  Report Type: Spontaneous
  Country: US (occurrence: None)
  Receive Date: 20140725
  Receipt Date: 20140725
  Transmission Date: 20150326
  Serious: No
  Sender: FDA-Public Use
  Company Number: AP356-00683-SPO-US

PATIENT
  Age: 45 Year
  Sex: Female
  Weight: 73.9 kg

DRUGS (1)
  1. BELVIQ [Suspect]
     Active Substance: LORCASERIN HYDROCHLORIDE
     Indication: WEIGHT CONTROL
     Route: 048
     Dates: start: 20140428

REACTIONS (4)
  - Back pain [None]
  - Nausea [None]
  - Dizziness [None]
  - Intentional underdose [None]

NARRATIVE: CASE EVENT DATE: 20140428
